FAERS Safety Report 18182687 (Version 5)
Quarter: 2020Q4

REPORT INFORMATION
  Report Type: Spontaneous
  Country: DE (occurrence: DE)
  Receive Date: 20200821
  Receipt Date: 20201015
  Transmission Date: 20210113
  Serious: Yes (Death, Hospitalization, Other)
  Sender: FDA-Public Use
  Company Number: NVSC2020DE226315

PATIENT
  Age: 63 Year
  Sex: Female

DRUGS (20)
  1. TORASEMID [Concomitant]
     Active Substance: TORSEMIDE
     Indication: HYPERTENSION
     Dosage: 20 MG, QD
     Route: 048
     Dates: start: 20200701
  2. DEXAMETHASONE. [Concomitant]
     Active Substance: DEXAMETHASONE
     Indication: PRODUCT USED FOR UNKNOWN INDICATION
     Dosage: 8 MG, OT
     Route: 048
     Dates: start: 20200618
  3. IBUPROFEN. [Concomitant]
     Active Substance: IBUPROFEN
     Indication: BONE PAIN
     Dosage: 600 MG, OT
     Route: 048
     Dates: start: 20200629, end: 202007
  4. LOPERAMIDE [Concomitant]
     Active Substance: LOPERAMIDE
     Indication: PRODUCT USED FOR UNKNOWN INDICATION
     Dosage: 2 MG, OT
     Route: 048
     Dates: start: 20200629
  5. OPIUM TINCTURE [Concomitant]
     Active Substance: MORPHINE
     Indication: BONE PAIN
     Dosage: UNK
     Route: 048
     Dates: start: 20200806
  6. CARBOPLATIN. [Suspect]
     Active Substance: CARBOPLATIN
     Indication: NON-SMALL CELL LUNG CANCER
     Dosage: 6 MG/M2, QMO (ON 06 AUG 2020, DATE LAST DOSE TAKEN PRIOR TO EVENT)
     Route: 042
     Dates: start: 20200624
  7. PACLITAX NAB [Suspect]
     Active Substance: PACLITAXEL
     Indication: NON-SMALL CELL LUNG CANCER
     Dosage: 100 MG/M2 (ON 06 AUG 2020, DATE LAST DOSE TAKEN PRIOR TO EVENT)
     Route: 042
     Dates: start: 20200624
  8. SEVREDOL [Concomitant]
     Active Substance: MORPHINE
     Indication: BONE PAIN
     Dosage: 10 MG, QD
     Route: 048
     Dates: start: 20200629
  9. NORSPAN [Concomitant]
     Active Substance: BUPRENORPHINE
     Indication: BONE PAIN
     Dosage: 10 UG, QW
     Route: 062
     Dates: start: 20200618
  10. RED BLOOD CELLS, CONCENTRATED [Concomitant]
     Active Substance: HUMAN RED BLOOD CELL
     Indication: PRODUCT USED FOR UNKNOWN INDICATION
     Dosage: UNK
     Route: 042
     Dates: start: 20200730
  11. CIPROFLOXACIN. [Concomitant]
     Active Substance: CIPROFLOXACIN
     Indication: PRODUCT USED FOR UNKNOWN INDICATION
     Dosage: 500 MG, HALF A DAY
     Route: 048
     Dates: start: 20200630, end: 20200710
  12. ESCITALOPRAM [Concomitant]
     Active Substance: ESCITALOPRAM OXALATE
     Indication: DEPRESSION
     Dosage: 10 MG, QD
     Route: 048
  13. LEVOTHYROXINE. [Concomitant]
     Active Substance: LEVOTHYROXINE
     Indication: HYPOTHYROIDISM
     Dosage: 75 MG, QD
     Route: 048
  14. ATEZOLIZUMAB. [Suspect]
     Active Substance: ATEZOLIZUMAB
     Indication: NON-SMALL CELL LUNG CANCER
     Dosage: 1200 MG, QMO (ON 06 AUG 2020, DATE LAST DOSE TAKEN PRIOR TO EVENT)
     Route: 042
     Dates: start: 20200624
  15. FUROSEMIDE. [Concomitant]
     Active Substance: FUROSEMIDE
     Indication: PRODUCT USED FOR UNKNOWN INDICATION
     Dosage: 40 MG, QD
     Route: 058
     Dates: start: 20200629, end: 20200629
  16. KALINOR [Concomitant]
     Indication: PRODUCT USED FOR UNKNOWN INDICATION
     Dosage: 600 MG, 0.33 A DAY
     Route: 048
     Dates: start: 20200716
  17. PREDNISOLONE. [Concomitant]
     Active Substance: PREDNISOLONE
     Indication: PRODUCT USED FOR UNKNOWN INDICATION
     Dosage: 50 MG, OT
     Route: 048
     Dates: start: 20200715
  18. LORAZEPAM. [Concomitant]
     Active Substance: LORAZEPAM
     Indication: DEPRESSION
     Dosage: 1 MG, OT
     Route: 048
     Dates: start: 20200715
  19. NOVAMINSULFON [Concomitant]
     Active Substance: METAMIZOLE
     Indication: BONE PAIN
     Dosage: 500 MG, 0.33 A DAY
     Route: 048
     Dates: start: 20200701
  20. QUETIAPIN [Concomitant]
     Active Substance: QUETIAPINE
     Indication: DEPRESSION
     Dosage: 100 MG, QD
     Route: 048

REACTIONS (6)
  - Respiratory failure [Fatal]
  - Death [Fatal]
  - Anaemia [Not Recovered/Not Resolved]
  - Diarrhoea [Not Recovered/Not Resolved]
  - Hypokalaemia [Not Recovered/Not Resolved]
  - Oedema peripheral [Unknown]

NARRATIVE: CASE EVENT DATE: 20200627
